FAERS Safety Report 8175947 (Version 23)
Quarter: 2014Q1

REPORT INFORMATION
  Report Type: Spontaneous
  Country: US (occurrence: US)
  Receive Date: 20111011
  Receipt Date: 20140109
  Transmission Date: 20141002
  Serious: Yes (Other)
  Sender: FDA-Public Use
  Company Number: PHEH2011US06365

PATIENT
  Sex: Female

DRUGS (2)
  1. ZOMETA [Suspect]
  2. NAPROSYN [Concomitant]
     Dosage: 500 MG, BID

REACTIONS (147)
  - Osteonecrosis of jaw [Unknown]
  - Amyloidosis [Unknown]
  - Cutaneous amyloidosis [Unknown]
  - Dermal cyst [Unknown]
  - Cyst [Unknown]
  - Folliculitis [Unknown]
  - Seborrhoeic keratosis [Unknown]
  - Skin lesion [Unknown]
  - Autoimmune disorder [Unknown]
  - Blood cholesterol increased [Unknown]
  - Deformity [Unknown]
  - Onychomycosis [Unknown]
  - Milia [Recovered/Resolved]
  - Ephelides [Unknown]
  - Benign neoplasm of skin [Unknown]
  - Tongue disorder [Unknown]
  - Bone fragmentation [Unknown]
  - Plasma cell myeloma [Unknown]
  - Peptic ulcer [Unknown]
  - Macular degeneration [Unknown]
  - Cardiomegaly [Unknown]
  - Rib fracture [Recovered/Resolved]
  - Rectal haemorrhage [Unknown]
  - Diverticulum intestinal [Unknown]
  - Haemorrhoids [Unknown]
  - Hiatus hernia [Unknown]
  - Arthritis [Unknown]
  - Diplopia [Unknown]
  - Retinal degeneration [Unknown]
  - Retinal detachment [Unknown]
  - Blepharitis [Unknown]
  - Deafness [Recovering/Resolving]
  - Macular hole [Unknown]
  - Head banging [Unknown]
  - Vision blurred [Unknown]
  - Osteoporosis [Unknown]
  - Spinal pain [Unknown]
  - Tooth loss [Unknown]
  - Joint swelling [Unknown]
  - Paraesthesia [Unknown]
  - Hypoaesthesia [Unknown]
  - Nodal osteoarthritis [Unknown]
  - Back pain [Unknown]
  - Arthralgia [Unknown]
  - Neuropathy peripheral [Unknown]
  - Musculoskeletal stiffness [Unknown]
  - Arthropathy [Unknown]
  - Gait disturbance [Unknown]
  - Bone marrow oedema [Unknown]
  - Bone cyst [Unknown]
  - Osteochondrosis [Unknown]
  - Chondropathy [Unknown]
  - Joint effusion [Unknown]
  - Meniscus injury [Unknown]
  - Ligament laxity [Unknown]
  - Musculoskeletal chest pain [Unknown]
  - Cough [Unknown]
  - Injury [Unknown]
  - Head injury [Unknown]
  - Fall [Unknown]
  - Cerebral ischaemia [Unknown]
  - Swelling [Unknown]
  - Ear infection [Unknown]
  - Impaired healing [Unknown]
  - Loose tooth [Unknown]
  - Exposed bone in jaw [Unknown]
  - Gingival pain [Unknown]
  - Bone loss [Unknown]
  - Ovarian cyst [Unknown]
  - Breast mass [Unknown]
  - Breast calcifications [Unknown]
  - Wrist fracture [Unknown]
  - Convulsion [Unknown]
  - Myocardial infarction [Unknown]
  - Spinal osteoarthritis [Unknown]
  - Osteopenia [Unknown]
  - Facet joint syndrome [Unknown]
  - Dyspnoea [Unknown]
  - Vertebral foraminal stenosis [Unknown]
  - Spinal column stenosis [Unknown]
  - Spondylolisthesis [Unknown]
  - Intervertebral disc protrusion [Unknown]
  - Lordosis [Unknown]
  - Sinus disorder [Unknown]
  - Laryngitis [Unknown]
  - Bone contusion [Unknown]
  - Adnexa uteri mass [Unknown]
  - Atelectasis [Unknown]
  - Depression [Unknown]
  - Monoclonal gammopathy [Unknown]
  - Scoliosis [Unknown]
  - Bone marrow disorder [Unknown]
  - Synovial cyst [Unknown]
  - Bone lesion [Unknown]
  - Hyperlipidaemia [Unknown]
  - Osteosclerosis [Unknown]
  - Exostosis [Unknown]
  - Spinal compression fracture [Unknown]
  - Mass [Unknown]
  - Vascular calcification [Unknown]
  - Amnesia [Unknown]
  - Viral infection [Unknown]
  - Intervertebral disc degeneration [Unknown]
  - Plasmacytosis [Unknown]
  - Cervical cyst [Unknown]
  - Upper respiratory tract infection [Unknown]
  - Tremor [Unknown]
  - Dysphonia [Unknown]
  - Rhinitis [Unknown]
  - Nasal turbinate hypertrophy [Unknown]
  - Nasal mucosal disorder [Unknown]
  - Nasal oedema [Unknown]
  - Upper-airway cough syndrome [Recovering/Resolving]
  - Rhinorrhoea [Unknown]
  - Chronic obstructive pulmonary disease [Unknown]
  - Intervertebral disc space narrowing [Unknown]
  - Endometrial hypertrophy [Unknown]
  - Anaemia [Unknown]
  - Spinal disorder [Unknown]
  - Blindness [Unknown]
  - Carpal tunnel syndrome [Unknown]
  - Polyp [Unknown]
  - Pneumonia [Unknown]
  - Malignant melanoma [Unknown]
  - Pain in jaw [Unknown]
  - Renal cyst [Unknown]
  - Urinary tract infection [Unknown]
  - Palpitations [Unknown]
  - Abdominal pain [Unknown]
  - Neck pain [Unknown]
  - Pain in extremity [Unknown]
  - Oesophagitis [Unknown]
  - Anxiety [Unknown]
  - Gastritis [Unknown]
  - Headache [Unknown]
  - Gastrooesophageal reflux disease [Unknown]
  - Skin papilloma [Unknown]
  - Presbyopia [Unknown]
  - Cerumen impaction [Unknown]
  - Osteoarthritis [Unknown]
  - Arteriosclerosis [Unknown]
  - Osteolysis [Unknown]
  - Periostitis [Unknown]
  - Bone pain [Unknown]
  - Tendon disorder [Unknown]
  - Bursitis [Unknown]
  - Femur fracture [Unknown]
